FAERS Safety Report 5936794-3 (Version None)
Quarter: 2008Q4

REPORT INFORMATION
  Report Type: 
  Country: None (occurrence: None)
  Receive Date: 20081029
  Receipt Date: 20081015
  Transmission Date: 20090506
  Serious: Yes (Hospitalization, Other)
  Sender: FDA-Public Use
  Company Number: 1022556-2008-00657

PATIENT
  Sex: Male

DRUGS (1)
  1. GARLIQUE [Suspect]
     Indication: MEDICAL DIET
     Dosage: 1X, 1 PILL, ORAL
     Route: 048
     Dates: start: 20081013

REACTIONS (4)
  - FOREIGN BODY TRAUMA [None]
  - MYALGIA [None]
  - OROPHARYNGEAL PAIN [None]
  - PHARYNGEAL OEDEMA [None]
